FAERS Safety Report 4757089-X (Version None)
Quarter: 2005Q3

REPORT INFORMATION
  Report Type: 
  Country: None (occurrence: None)
  Receive Date: 20050829
  Receipt Date: 20050815
  Transmission Date: 20060218
  Serious: Yes (Death, Hospitalization)
  Sender: FDA-Public Use
  Company Number: CERZ-10940

PATIENT
  Age: 4 Year
  Sex: Female
  Weight: 11 kg

DRUGS (2)
  1. CEREZYME [Suspect]
     Indication: GAUCHER'S DISEASE
     Dosage: 1000 UNITS 1XW IV
     Route: 042
     Dates: start: 20031001, end: 20050624
  2. CEREZYME [Suspect]
     Indication: GAUCHER'S DISEASE
     Dosage: 600 UNITS Q2WKS IV
     Route: 042
     Dates: start: 20011015

REACTIONS (10)
  - BRAIN DAMAGE [None]
  - CARDIO-RESPIRATORY ARREST [None]
  - CONCOMITANT DISEASE PROGRESSION [None]
  - DISEASE RECURRENCE [None]
  - GAUCHER'S DISEASE [None]
  - HYPOXIA [None]
  - KLEBSIELLA INFECTION [None]
  - OXYGEN SATURATION DECREASED [None]
  - PNEUMONIA ADENOVIRAL [None]
  - PNEUMONIA STREPTOCOCCAL [None]
